FAERS Safety Report 16702219 (Version 1)
Quarter: 2019Q3

REPORT INFORMATION
  Report Type: Spontaneous
  Country: GB (occurrence: GB)
  Receive Date: 20190814
  Receipt Date: 20190814
  Transmission Date: 20191004
  Serious: Yes (Life-Threatening, Hospitalization, Other)
  Sender: FDA-Public Use
  Company Number: GB-PFIZER INC-2019339622

PATIENT
  Age: 11 Month
  Sex: Male

DRUGS (1)
  1. PAMIDRONATE DISODIUM. [Suspect]
     Active Substance: PAMIDRONATE DISODIUM
     Indication: OSTEOGENESIS IMPERFECTA
     Dosage: UNK, CYCLIC (FOUR COURSES, WITH GRADUALLY INCREASING DOSES, FIFTH CYCLE)

REACTIONS (3)
  - Hyperpyrexia [Unknown]
  - Respiratory distress [Recovered/Resolved]
  - Rhabdomyolysis [Recovered/Resolved]
